FAERS Safety Report 10080385 (Version 1)
Quarter: 2014Q2

REPORT INFORMATION
  Report Type: Spontaneous
  Country: US (occurrence: US)
  Receive Date: 20140415
  Receipt Date: 20140415
  Transmission Date: 20141212
  Serious: No
  Sender: FDA-Public Use
  Company Number: US-009507513-1404USA008900

PATIENT
  Sex: 0

DRUGS (4)
  1. JANUMET [Suspect]
     Route: 048
  2. JANUVIA [Suspect]
     Indication: BLOOD GLUCOSE INCREASED
     Route: 048
  3. VICTOZA [Concomitant]
  4. LEVEMIR FLEXPEN [Concomitant]

REACTIONS (2)
  - Adverse event [Unknown]
  - Drug ineffective [Unknown]
